FAERS Safety Report 11176748 (Version 5)
Quarter: 2016Q4

REPORT INFORMATION
  Report Type: Spontaneous
  Country: CA (occurrence: CA)
  Receive Date: 20150610
  Receipt Date: 20161116
  Transmission Date: 20170206
  Serious: Yes (Other)
  Sender: FDA-Public Use
  Company Number: CA-ROCHE-1589866

PATIENT
  Age: 52 Year
  Sex: Female

DRUGS (12)
  1. ENBREL [Suspect]
     Active Substance: ETANERCEPT
     Indication: RHEUMATOID ARTHRITIS
     Dosage: THERAPY DURATION: 8 YEARS
     Route: 058
     Dates: start: 200407, end: 201103
  2. ARAVA [Suspect]
     Active Substance: LEFLUNOMIDE
     Dosage: THERAPY DURATION: 4 MONTHS
     Route: 048
     Dates: end: 200306
  3. PLAQUENIL [Suspect]
     Active Substance: HYDROXYCHLOROQUINE SULFATE
     Indication: RHEUMATOID ARTHRITIS
     Route: 048
  4. REMICADE [Suspect]
     Active Substance: INFLIXIMAB
     Indication: RHEUMATOID ARTHRITIS
     Dosage: THERAPY DURATION: 6 MONTHS
     Route: 042
     Dates: start: 200402, end: 200407
  5. HUMIRA [Suspect]
     Active Substance: ADALIMUMAB
     Indication: RHEUMATOID ARTHRITIS
     Dosage: FOR 4 YEARS
     Route: 058
     Dates: end: 201312
  6. ARAVA [Suspect]
     Active Substance: LEFLUNOMIDE
     Indication: RHEUMATOID ARTHRITIS
     Route: 048
     Dates: start: 200604, end: 200606
  7. METHOTREXATE SODIUM. [Suspect]
     Active Substance: METHOTREXATE SODIUM
     Route: 065
     Dates: start: 200504
  8. ARAVA [Suspect]
     Active Substance: LEFLUNOMIDE
     Route: 048
     Dates: start: 200807, end: 200809
  9. RITUXAN [Suspect]
     Active Substance: RITUXIMAB
     Indication: RHEUMATOID ARTHRITIS
     Dosage: DISCONTINUED AFTER 2 CYCLES, THERAPY DURATION: 4 MONTHS.
     Route: 042
     Dates: start: 2014
  10. METHOTREXATE SODIUM. [Suspect]
     Active Substance: METHOTREXATE SODIUM
     Indication: RHEUMATOID ARTHRITIS
     Route: 065
     Dates: start: 200206, end: 20150404
  11. TOFACITINIB [Concomitant]
     Active Substance: TOFACITINIB
     Route: 065
     Dates: start: 20150528
  12. METHOTREXATE SODIUM. [Suspect]
     Active Substance: METHOTREXATE SODIUM
     Route: 065
     Dates: end: 201406

REACTIONS (10)
  - Dyspepsia [Unknown]
  - Therapeutic response decreased [Unknown]
  - Nausea [Unknown]
  - Red blood cell sedimentation rate increased [Unknown]
  - C-reactive protein increased [Unknown]
  - Liver function test abnormal [Unknown]
  - Liver function test increased [Unknown]
  - Drug ineffective [Unknown]
  - Rheumatoid arthritis [Unknown]
  - Drug intolerance [Unknown]

NARRATIVE: CASE EVENT DATE: 20150429
